FAERS Safety Report 14582803 (Version 2)
Quarter: 2018Q2

REPORT INFORMATION
  Report Type: Spontaneous
  Country: DE (occurrence: DE)
  Receive Date: 20180228
  Receipt Date: 20180426
  Transmission Date: 20180711
  Serious: Yes (Death, Life-Threatening, Hospitalization, Other)
  Sender: FDA-Public Use
  Company Number: DE-SA-2018SA052983

PATIENT
  Age: 48 Year
  Sex: Female

DRUGS (6)
  1. OXALIPLATIN. [Suspect]
     Active Substance: OXALIPLATIN
     Indication: APPENDIX CANCER
     Dosage: POWDER FOR SOLUTION FOR INFUSION
     Route: 033
     Dates: start: 2016, end: 2016
  2. CALCIUM FOLINATE [Suspect]
     Active Substance: LEUCOVORIN CALCIUM
     Indication: METASTASIS
     Route: 042
     Dates: start: 2016, end: 2016
  3. FLUOROURACIL. [Suspect]
     Active Substance: FLUOROURACIL
     Indication: METASTASIS
     Route: 042
     Dates: start: 2016, end: 2016
  4. FLUOROURACIL. [Suspect]
     Active Substance: FLUOROURACIL
     Indication: APPENDIX CANCER
     Route: 042
     Dates: start: 2016, end: 2016
  5. OXALIPLATIN. [Suspect]
     Active Substance: OXALIPLATIN
     Indication: METASTASIS
     Dosage: POWDER FOR SOLUTION FOR INFUSION
     Route: 033
     Dates: start: 2016, end: 2016
  6. CALCIUM FOLINATE [Suspect]
     Active Substance: LEUCOVORIN CALCIUM
     Indication: APPENDIX CANCER
     Route: 042
     Dates: start: 2016, end: 2016

REACTIONS (7)
  - Pulmonary hypertension [Fatal]
  - Fatigue [Unknown]
  - Sinus tachycardia [Unknown]
  - Dyspnoea [Unknown]
  - Interstitial lung disease [Fatal]
  - Respiratory failure [Fatal]
  - Right ventricular failure [Fatal]
